FAERS Safety Report 16323179 (Version 1)
Quarter: 2019Q2

REPORT INFORMATION
  Report Type: Spontaneous
  Country: SI (occurrence: SI)
  Receive Date: 20190517
  Receipt Date: 20190517
  Transmission Date: 20190711
  Serious: Yes (Other)
  Sender: FDA-Public Use
  Company Number: SI-ROCHE-2318953

PATIENT
  Age: 86 Year
  Sex: Female
  Weight: 62 kg

DRUGS (7)
  1. ROACTEMRA [Suspect]
     Active Substance: TOCILIZUMAB
     Indication: RHEUMATOID ARTHRITIS
     Route: 042
     Dates: start: 20120605, end: 20180918
  2. HYZAAR [Concomitant]
     Active Substance: HYDROCHLOROTHIAZIDE\LOSARTAN POTASSIUM
     Route: 065
  3. NOLPAZA [Concomitant]
     Active Substance: PANTOPRAZOLE SODIUM
     Route: 065
  4. LORISTA [Concomitant]
     Active Substance: LOSARTAN POTASSIUM
     Route: 065
  5. PLIVIT D3 [Concomitant]
     Active Substance: CHOLECALCIFEROL
     Route: 065
  6. SORVASTA [Concomitant]
     Active Substance: ROSUVASTATIN CALCIUM
     Route: 065
  7. ASPIRIN PROTECT [Concomitant]
     Active Substance: ASPIRIN
     Route: 065

REACTIONS (2)
  - Neoplasm [Recovering/Resolving]
  - Bladder neoplasm surgery [Unknown]

NARRATIVE: CASE EVENT DATE: 20181015
